FAERS Safety Report 7726452-7 (Version None)
Quarter: 2011Q3

REPORT INFORMATION
  Report Type: 
  Country: None (occurrence: None)
  Receive Date: 20110902
  Receipt Date: 20110829
  Transmission Date: 20111222
  Serious: Yes (Other)
  Sender: FDA-Public Use
  Company Number: KR-GENZYME-CAMP-1001867

PATIENT
  Sex: Female

DRUGS (10)
  1. TACROLIMUS [Concomitant]
     Indication: IMMUNOSUPPRESSION
     Dosage: MEAN TAC TROUGH LEVELS WERE MAINTAINED WITHIN 5-8 MG/DL
     Route: 065
  2. VALTREX [Concomitant]
     Indication: ANTIVIRAL PROPHYLAXIS
     Dosage: 6000 MG, QD FOR AT LEAST 1 MONTH
     Route: 048
  3. METHYLPREDNISOLONE [Concomitant]
     Indication: PREMEDICATION
     Dosage: 500 MG, ONCE; GIVEN INTRAOPERATIVELY AT THE TIME OF TRANSPLANTATION
     Route: 042
  4. MYCOPHENOLATE MOFETIL [Concomitant]
     Indication: IMMUNOSUPPRESSION
     Dosage: UNK
     Route: 065
  5. CEFTIZOXIME [Concomitant]
     Indication: ANTI-INFECTIVE THERAPY
     Dosage: 1 G, Q12HR GIVEN WITHIN 1 HR OF THE SKIN INCISION AND CONTINUED UNTIL POSTOP DAY 2
     Route: 042
  6. CAMPATH [Suspect]
     Indication: SURGICAL PRECONDITIONING
     Dosage: 20 MG, QD; FIRST WAS GIVEN INTRAOPERATIVELY AT TIME OF TRANSPLANTATION
     Route: 042
  7. MYCOSTATIN [Concomitant]
     Indication: PROPHYLAXIS
     Dosage: 500,000U/5ML, QID; SWISH AND SWALLOW
     Route: 048
  8. METHYLPREDNISOLONE [Concomitant]
     Indication: IMMUNOSUPPRESSION
     Dosage: RAPIDLY TAPERED DOSES
     Route: 065
  9. METHYLPREDNISOLONE [Concomitant]
     Dosage: 250 MG, ONCE; GIVEN ON POST-OP DAY 1
     Route: 042
  10. BACTRIM [Concomitant]
     Indication: PROPHYLAXIS
     Dosage: 80MG/400MG, BID
     Route: 065

REACTIONS (4)
  - URETERIC OBSTRUCTION [None]
  - LEUKOPENIA [None]
  - NEUTROPENIA [None]
  - LYMPHOPENIA [None]
